FAERS Safety Report 6139510-8 (Version None)
Quarter: 2009Q2

REPORT INFORMATION
  Report Type: 
  Country: None (occurrence: None)
  Receive Date: 20090401
  Receipt Date: 20090323
  Transmission Date: 20091009
  Serious: Yes (Hospitalization)
  Sender: FDA-Public Use
  Company Number: FR-ASTRAZENECA-2009CG00577

PATIENT
  Age: 53 Year
  Sex: Female

DRUGS (6)
  1. SYMBICORT [Suspect]
     Indication: ASTHMA
     Dosage: 320/9 UG PER DOSE
     Route: 055
     Dates: end: 20090301
  2. SYMBICORT [Suspect]
     Dosage: 320/9 UG PER DOSE
     Route: 055
     Dates: start: 20090301, end: 20090301
  3. SYMBICORT [Suspect]
     Dosage: 320/9 UG PER DOSE
     Route: 055
     Dates: start: 20090301
  4. SURBRONC [Concomitant]
  5. UNSPECIFIED ANTIHISTAMINIC DRUGS [Concomitant]
  6. ACETYLCYSTEINE [Concomitant]

REACTIONS (1)
  - ASTHMATIC CRISIS [None]
